FAERS Safety Report 9215165 (Version 1)
Quarter: 2013Q2

REPORT INFORMATION
  Report Type: Spontaneous
  Country: US (occurrence: US)
  Receive Date: 20130405
  Receipt Date: 20130405
  Transmission Date: 20140414
  Serious: Yes (Other)
  Sender: FDA-Public Use
  Company Number: US-PFIZER INC-2013107224

PATIENT
  Age: 50 Year
  Sex: Female
  Weight: 84.82 kg

DRUGS (2)
  1. IBUPROFEN [Suspect]
     Indication: PRODUCT USED FOR UNKNOWN INDICATION
     Dosage: 800 MG, 3X/DAY
     Route: 048
  2. XARELTO [Suspect]
     Indication: DEEP VEIN THROMBOSIS
     Dosage: 20 MG, 1X/DAY
     Route: 048
     Dates: start: 20130109, end: 20130214

REACTIONS (3)
  - Injection site haemorrhage [Unknown]
  - Coagulation time prolonged [Unknown]
  - Haemoptysis [Recovering/Resolving]
